FAERS Safety Report 9852849 (Version 2)
Quarter: 2014Q1

REPORT INFORMATION
  Report Type: Report from Study
  Country: JP (occurrence: JP)
  Receive Date: 20140129
  Receipt Date: 20140319
  Transmission Date: 20141002
  Serious: Yes (Death, Hospitalization)
  Sender: FDA-Public Use
  Company Number: JP-SA-2014SA010756

PATIENT
  Age: 34 Year
  Sex: Female
  Weight: 39 kg

DRUGS (4)
  1. THYMOGLOBULINE [Suspect]
     Indication: BONE MARROW CONDITIONING REGIMEN
     Route: 042
     Dates: start: 20130605, end: 20130606
  2. SANDIMMUN [Concomitant]
     Indication: PROPHYLAXIS AGAINST GRAFT VERSUS HOST DISEASE
     Dates: start: 20130618, end: 20130925
  3. CELLCEPT [Concomitant]
     Indication: PROPHYLAXIS AGAINST GRAFT VERSUS HOST DISEASE
     Dates: start: 20130618, end: 20130925
  4. CANCIDAS [Concomitant]
     Indication: INFECTION PROPHYLAXIS
     Dates: end: 20130722

REACTIONS (3)
  - Cystitis haemorrhagic [Fatal]
  - Bronchopulmonary aspergillosis [Fatal]
  - Engraft failure [Recovered/Resolved]
